FAERS Safety Report 24868191 (Version 1)
Quarter: 2025Q1

REPORT INFORMATION
  Report Type: Spontaneous
  Country: US (occurrence: US)
  Receive Date: 20250121
  Receipt Date: 20250121
  Transmission Date: 20250408
  Serious: Yes (Death)
  Sender: JOHNSON AND JOHNSON
  Company Number: US-KENVUE-20250102736

PATIENT
  Age: 38 Year
  Sex: Male

DRUGS (3)
  1. ACETAMINOPHEN [Suspect]
     Active Substance: ACETAMINOPHEN
     Indication: Suicide attempt
  2. TRAMADOL [Suspect]
     Active Substance: TRAMADOL
     Indication: Suicide attempt
  3. GABAPENTIN [Suspect]
     Active Substance: GABAPENTIN
     Indication: Suicide attempt

REACTIONS (1)
  - Toxicity to various agents [Fatal]
